FAERS Safety Report 17020685 (Version 1)
Quarter: 2019Q4

REPORT INFORMATION
  Report Type: Spontaneous
  Country: US (occurrence: US)
  Receive Date: 20191112
  Receipt Date: 20191112
  Transmission Date: 20200122
  Serious: Yes (Other)
  Sender: FDA-Public Use
  Company Number: US-JNJFOC-20191102246

PATIENT
  Age: 79 Year
  Sex: Female
  Weight: 46.76 kg

DRUGS (2)
  1. SYSTANE BALANCE [Concomitant]
     Active Substance: PROPYLENE GLYCOL
  2. LEVAQUIN [Suspect]
     Active Substance: LEVOFLOXACIN
     Indication: PRODUCT USED FOR UNKNOWN INDICATION
     Route: 065

REACTIONS (5)
  - Eye inflammation [Not Recovered/Not Resolved]
  - Hypoaesthesia eye [Recovered/Resolved]
  - Asthenopia [Not Recovered/Not Resolved]
  - Conjunctival haemorrhage [Recovering/Resolving]
  - Ocular discomfort [Recovered/Resolved]

NARRATIVE: CASE EVENT DATE: 20190920
